FAERS Safety Report 21919365 (Version 1)
Quarter: 2023Q1

REPORT INFORMATION
  Report Type: Report from Study
  Country: IN (occurrence: IN)
  Receive Date: 20230127
  Receipt Date: 20230127
  Transmission Date: 20230417
  Serious: Yes (Other)
  Sender: FDA-Public Use
  Company Number: IN-TAKEDA-2023TUS009167

PATIENT
  Age: 7 Year
  Sex: Male

DRUGS (3)
  1. ADVATE [Suspect]
     Active Substance: ANTIHEMOPHILIC FACTOR, HUMAN RECOMBINANT
     Indication: Factor VIII deficiency
     Dosage: 5000 INTERNATIONAL UNIT, Q2WEEKS
     Route: 042
     Dates: start: 202105
  2. ADVATE [Suspect]
     Active Substance: ANTIHEMOPHILIC FACTOR, HUMAN RECOMBINANT
     Indication: Factor VIII deficiency
     Dosage: 5000 INTERNATIONAL UNIT, Q2WEEKS
     Route: 042
     Dates: start: 202105
  3. ADVATE [Suspect]
     Active Substance: ANTIHEMOPHILIC FACTOR, HUMAN RECOMBINANT
     Indication: Factor VIII deficiency
     Dosage: 5000 INTERNATIONAL UNIT, Q2WEEKS
     Route: 042
     Dates: start: 202105

REACTIONS (1)
  - Inhibiting antibodies positive [Not Recovered/Not Resolved]

NARRATIVE: CASE EVENT DATE: 20230123
